FAERS Safety Report 5928684-7 (Version None)
Quarter: 2008Q3

REPORT INFORMATION
  Report Type: 
  Country: None (occurrence: None)
  Receive Date: 20080923
  Receipt Date: 20080107
  Transmission Date: 20090109
  Serious: Yes (Life-Threatening, Hospitalization)
  Sender: FDA-Public Use
  Company Number: WAES 0801USA02178

PATIENT
  Age: 70 Year
  Sex: Male
  Weight: 103.4201 kg

DRUGS (15)
  1. VYTORIN [Suspect]
     Indication: BLOOD CHOLESTEROL INCREASED
     Dosage: 10-80 MG/HS/PO
     Route: 048
     Dates: start: 20070120, end: 20070123
  2. ZOCOR [Suspect]
     Dosage: 80 MG/DAILY/PO
     Route: 048
     Dates: start: 20030101, end: 20070119
  3. ABSORBASE [Concomitant]
  4. MAALOX [Concomitant]
  5. PRINIVIL [Concomitant]
  6. ZOLOFT [Concomitant]
  7. ACETAMINOPHEN WITH PROPOXYPHENE HCL TAB [Concomitant]
  8. ALBUTEROL (+) IPRATORPIUM BROMID [Concomitant]
  9. ASPIRIN [Concomitant]
  10. CLOPIDOGREL BISULFATE [Concomitant]
  11. FLUNISOLIDE [Concomitant]
  12. FUROSEMIDE [Concomitant]
  13. HYDROCORTISONE [Concomitant]
  14. LIDOCADINE [Concomitant]
  15. OMEPRAZOLE [Concomitant]

REACTIONS (17)
  - ARTERIAL STENOSIS LIMB [None]
  - BACK PAIN [None]
  - DEPRESSION [None]
  - DIVERTICULUM [None]
  - FALL [None]
  - FLUID OVERLOAD [None]
  - GASTROINTESTINAL PAIN [None]
  - GENERALISED ANXIETY DISORDER [None]
  - HAEMOPTYSIS [None]
  - INTERVERTEBRAL DISC DEGENERATION [None]
  - LOW DENSITY LIPOPROTEIN INCREASED [None]
  - LUNG INFECTION [None]
  - LUNG NEOPLASM [None]
  - OEDEMA PERIPHERAL [None]
  - PNEUMONIA [None]
  - RHABDOMYOLYSIS [None]
  - TREMOR [None]
